FAERS Safety Report 7621790-0 (Version None)
Quarter: 2011Q3

REPORT INFORMATION
  Report Type: 
  Country: None (occurrence: None)
  Receive Date: 20110720
  Receipt Date: 20110712
  Transmission Date: 20111222
  Serious: Yes (Hospitalization)
  Sender: FDA-Public Use
  Company Number: DK-AMGEN-DNKSP2010007492

PATIENT
  Age: 66 Year
  Sex: Female

DRUGS (2)
  1. MARZINE                            /00014902/ [Concomitant]
  2. ENBREL [Suspect]
     Indication: PSORIASIS
     Dosage: 50 MILLIGRAM(S)
     Route: 058
     Dates: start: 20100224, end: 20100402

REACTIONS (1)
  - GLIOBLASTOMA MULTIFORME [None]
